FAERS Safety Report 8924752 (Version 1)
Quarter: 2012Q4

REPORT INFORMATION
  Report Type: Spontaneous
  Country: US (occurrence: None)
  Receive Date: 20121116
  Receipt Date: 20121116
  Transmission Date: 20130627
  Serious: Yes (Hospitalization)
  Sender: FDA-Public Use
  Company Number: 001398432A

PATIENT
  Age: 33 Year

DRUGS (4)
  1. PROACTIV RENEWING CLEANSER [Suspect]
     Indication: ACNE
     Dosage: Twice daily dermal
     Dates: start: 20120731, end: 20120808
  2. PROACTIV REPAIRING TREATMENT [Suspect]
     Indication: ACNE
     Dosage: Twice daily dermal
     Dates: start: 20120731, end: 20120808
  3. LYRICA [Concomitant]
  4. LASIX [Concomitant]

REACTIONS (1)
  - Skin infection [None]
